FAERS Safety Report 4368846-6 (Version None)
Quarter: 2004Q2

REPORT INFORMATION
  Report Type: 
  Country: None (occurrence: None)
  Receive Date: 20040525
  Receipt Date: 20040513
  Transmission Date: 20050107
  Serious: Yes (Death)
  Sender: FDA-Public Use
  Company Number: US-JNJFOC- 20040503038

PATIENT
  Age: 70 Year
  Sex: Male

DRUGS (1)
  1. DURAGESIC [Suspect]
     Indication: CANCER PAIN
     Dosage: 1 IN 48 HOUR, TRANSDERMAL
     Route: 062
     Dates: start: 20030101, end: 20030912

REACTIONS (1)
  - METASTASES TO BONE [None]
